FAERS Safety Report 17411448 (Version 4)
Quarter: 2020Q3

REPORT INFORMATION
  Report Type: Report from Study
  Country: None (occurrence: US)
  Receive Date: 20200212
  Receipt Date: 20200723
  Transmission Date: 20201102
  Serious: Yes (Other)
  Sender: FDA-Public Use
  Company Number: US-ABBVIE-20K-163-3266612-00

PATIENT
  Age: 40 Year
  Sex: Female

DRUGS (2)
  1. HUMIRA [Suspect]
     Active Substance: ADALIMUMAB
     Indication: CROHN^S DISEASE
     Route: 058
  2. HUMIRA [Suspect]
     Active Substance: ADALIMUMAB
     Indication: CROHN^S DISEASE
     Route: 058
     Dates: start: 2019

REACTIONS (13)
  - Injection site haemorrhage [Recovered/Resolved]
  - Device issue [Unknown]
  - Needle issue [Unknown]
  - Injection site pain [Recovered/Resolved]
  - Incorrect dose administered [Unknown]
  - Sinusitis [Recovered/Resolved]
  - Loss of consciousness [Unknown]
  - Fluid retention [Unknown]
  - Pyrexia [Unknown]
  - Injection site urticaria [Unknown]
  - Abdominal distension [Not Recovered/Not Resolved]
  - Crohn^s disease [Recovering/Resolving]
  - Fear of injection [Unknown]

NARRATIVE: CASE EVENT DATE: 202001
